FAERS Safety Report 11561946 (Version 2)
Quarter: 2015Q4

REPORT INFORMATION
  Report Type: Spontaneous
  Country: US (occurrence: US)
  Receive Date: 20150928
  Receipt Date: 20151203
  Transmission Date: 20160304
  Serious: Yes (Hospitalization, Other)
  Sender: FDA-Public Use
  Company Number: US-GLAXOSMITHKLINE-US2015136359

PATIENT
  Age: 47 Year
  Sex: Female

DRUGS (11)
  1. VENTOLIN HFA [Suspect]
     Active Substance: ALBUTEROL SULFATE
     Indication: DYSPNOEA
     Dosage: TYPICALLY 1-2 PUFFS PER DAY
     Route: 055
     Dates: start: 20150817
  2. FOLIC ACID. [Concomitant]
     Active Substance: FOLIC ACID
  3. PERCOCET [Concomitant]
     Active Substance: ACETAMINOPHEN\OXYCODONE HYDROCHLORIDE
  4. PAXIL [Concomitant]
     Active Substance: PAROXETINE HYDROCHLORIDE
  5. PANTOPRAZOLE SODIUM. [Concomitant]
     Active Substance: PANTOPRAZOLE SODIUM
  6. VITAMIN C [Concomitant]
     Active Substance: ASCORBIC ACID
  7. ATIVAN [Concomitant]
     Active Substance: LORAZEPAM
  8. VITAMIN B12 [Concomitant]
     Active Substance: CYANOCOBALAMIN
  9. DOXYCYCLINE. [Concomitant]
     Active Substance: DOXYCYCLINE
  10. DULERA [Concomitant]
     Active Substance: FORMOTEROL FUMARATE DIHYDRATE\MOMETASONE FUROATE
  11. IRON [Concomitant]
     Active Substance: IRON

REACTIONS (5)
  - Splenectomy [Recovering/Resolving]
  - Dyspnoea [Unknown]
  - Drug ineffective [Unknown]
  - Colonoscopy [Unknown]
  - Product cleaning inadequate [Recovered/Resolved]

NARRATIVE: CASE EVENT DATE: 20150910
